FAERS Safety Report 5053418-0 (Version None)
Quarter: 2006Q3

REPORT INFORMATION
  Report Type: 
  Country: None (occurrence: None)
  Receive Date: 20060718
  Receipt Date: 20060629
  Transmission Date: 20061208
  Serious: Yes (Death)
  Sender: FDA-Public Use
  Company Number: PHBS2006NL09725

PATIENT
  Age: 79 Year
  Sex: Male

DRUGS (6)
  1. EXELON [Suspect]
     Indication: DEMENTIA ALZHEIMER'S TYPE
     Dosage: 1.5 MG, BID
     Route: 048
     Dates: start: 20060222
  2. EXELON [Suspect]
     Dosage: 3 MG, BID
     Route: 048
  3. EXELON [Suspect]
     Dosage: 1.5 MG, BID
     Route: 048
     Dates: end: 20060306
  4. COZAAR [Concomitant]
     Indication: HYPERTENSION
     Dosage: 50 MG, QD
  5. PRAVASTATIN [Concomitant]
     Indication: HYPERCHOLESTEROLAEMIA
     Dosage: 20 MG, QD
  6. ASPIRIN [Concomitant]
     Indication: ANGIOPATHY
     Dosage: 80 MG, QD

REACTIONS (4)
  - DEATH [None]
  - ILLUSION [None]
  - MOBILITY DECREASED [None]
  - MUSCLE RIGIDITY [None]
